FAERS Safety Report 7218985-7 (Version None)
Quarter: 2011Q1

REPORT INFORMATION
  Report Type: 
  Country: None (occurrence: None)
  Receive Date: 20110111
  Receipt Date: 20101230
  Transmission Date: 20110831
  Serious: Yes (Hospitalization)
  Sender: FDA-Public Use
  Company Number: US-BIOGENIDEC-2010BI031963

PATIENT
  Age: 43 Year
  Sex: Female

DRUGS (2)
  1. AVONEX [Concomitant]
     Indication: MULTIPLE SCLEROSIS
     Route: 030
  2. TYSABRI [Suspect]
     Indication: MULTIPLE SCLEROSIS
     Route: 042
     Dates: start: 20100824

REACTIONS (10)
  - MULTIPLE SCLEROSIS RELAPSE [None]
  - APHAGIA [None]
  - VEIN DISORDER [None]
  - MEMORY IMPAIRMENT [None]
  - COUGH [None]
  - WEIGHT DECREASED [None]
  - DEVICE COMPONENT ISSUE [None]
  - FATIGUE [None]
  - DYSPHONIA [None]
  - URINARY TRACT INFECTION [None]
